FAERS Safety Report 17670612 (Version 3)
Quarter: 2020Q2

REPORT INFORMATION
  Report Type: Report from Study
  Country: US (occurrence: US)
  Receive Date: 20200415
  Receipt Date: 20200507
  Transmission Date: 20200713
  Serious: Yes (Death)
  Sender: FDA-Public Use
  Company Number: NVSC2020US100062

PATIENT
  Age: 94 Year
  Sex: Female
  Weight: 136 kg

DRUGS (1)
  1. ENTRESTO [Suspect]
     Active Substance: SACUBITRIL\VALSARTAN
     Indication: CARDIAC FAILURE CONGESTIVE
     Dosage: 1 DF (97/103 MG), BID
     Route: 048
     Dates: start: 20151124

REACTIONS (1)
  - Death [Fatal]

NARRATIVE: CASE EVENT DATE: 20200411
